FAERS Safety Report 6526751-0 (Version None)
Quarter: 2010Q1

REPORT INFORMATION
  Report Type: 
  Country: None (occurrence: None)
  Receive Date: 20100105
  Receipt Date: 20091228
  Transmission Date: 20100710
  Serious: Yes (Other)
  Sender: FDA-Public Use
  Company Number: US-BAYER-200941205NA

PATIENT
  Age: 27 Year
  Sex: Female
  Weight: 78 kg

DRUGS (2)
  1. MIRENA [Suspect]
     Indication: CONTRACEPTION
     Dosage: CONTINUOUS
     Route: 015
     Dates: start: 20090729
  2. CELEXA [Concomitant]
     Indication: POSTPARTUM DEPRESSION

REACTIONS (3)
  - ABDOMINAL PAIN LOWER [None]
  - PROCEDURAL PAIN [None]
  - UTERINE PERFORATION [None]
